FAERS Safety Report 5048281-8 (Version None)
Quarter: 2006Q2

REPORT INFORMATION
  Report Type: 
  Country: None (occurrence: None)
  Receive Date: 20060601
  Receipt Date: 20060218
  Transmission Date: 20061013
  Serious: No
  Sender: FDA-Public Use
  Company Number: 2006PV008869

PATIENT
  Age: 65 Year
  Sex: Male

DRUGS (3)
  1. BYETTA [Suspect]
     Indication: DIABETES MELLITUS NON-INSULIN-DEPENDENT
     Dosage: 10 MCG;BID;SC
     Route: 058
     Dates: start: 20060201
  2. METFORMIN HCL [Concomitant]
  3. GLIMEPIRIDE [Concomitant]

REACTIONS (1)
  - INJECTION SITE IRRITATION [None]
